FAERS Safety Report 8396133-8 (Version None)
Quarter: 2012Q2

REPORT INFORMATION
  Report Type: 
  Country: None (occurrence: None)
  Receive Date: 20120530
  Receipt Date: 20110617
  Transmission Date: 20120825
  Serious: Yes (Hospitalization)
  Sender: FDA-Public Use
  Company Number: US-GLAXOSMITHKLINE-A0935779A

PATIENT
  Age: 61 Year
  Sex: Female

DRUGS (1)
  1. AVANDIA [Suspect]
     Indication: DIABETES MELLITUS
     Dosage: 4MG PER DAY
     Route: 048
     Dates: start: 20050415, end: 20090101

REACTIONS (2)
  - CARDIAC ASSISTANCE DEVICE USER [None]
  - CARDIAC FAILURE CONGESTIVE [None]
